FAERS Safety Report 8995930 (Version 1)
Quarter: 2013Q1

REPORT INFORMATION
  Report Type: Spontaneous
  Country: US (occurrence: US)
  Receive Date: 20130103
  Receipt Date: 20130103
  Transmission Date: 20140127
  Serious: Yes (Death, Other)
  Sender: FDA-Public Use
  Company Number: PHHY2012US121749

PATIENT
  Age: 88 Year
  Sex: Female

DRUGS (2)
  1. ASCRIPTIN BUFFERED CAPS UNKNOWN FORMULA [Suspect]
     Indication: PAIN
     Route: 048
  2. TYLENOL [Suspect]

REACTIONS (2)
  - Pneumonia [Fatal]
  - Gait disturbance [Unknown]
